FAERS Safety Report 17511668 (Version 6)
Quarter: 2020Q4

REPORT INFORMATION
  Report Type: Spontaneous
  Country: GB (occurrence: GB)
  Receive Date: 20200307
  Receipt Date: 20201006
  Transmission Date: 20210113
  Serious: Yes (Hospitalization, Other)
  Sender: FDA-Public Use
  Company Number: GB-AUROBINDO-AUR-APL-2020-011049

PATIENT
  Age: 90 Year
  Sex: Female

DRUGS (10)
  1. NIFEDIPINE. [Interacting]
     Active Substance: NIFEDIPINE
     Indication: HYPERTENSION
     Dosage: 40 MILLIGRAM, ONCE A DAY
     Route: 065
  2. NIFEDIPINE. [Interacting]
     Active Substance: NIFEDIPINE
     Dosage: 10 MILLIGRAM, ONCE A DAY, LONG-STANDING
     Route: 048
  3. ASPIRIN. [Interacting]
     Active Substance: ASPIRIN
     Indication: PRODUCT USED FOR UNKNOWN INDICATION
     Dosage: 300 MILLIGRAM, ONCE A DAY 300 MILLIGRAM, RECEIVED UPON ONCE AT
     Route: 065
  4. ATORVASTATIN 40 MG [Interacting]
     Active Substance: ATORVASTATIN
     Dosage: 40 MILLIGRAM, ONCE A DAY, (ONCE NIGHTLY (STARTED IN TIA CLINIC)
     Route: 065
  5. CLOPIDOGREL [Interacting]
     Active Substance: CLOPIDOGREL BISULFATE
     Indication: TRANSIENT ISCHAEMIC ATTACK
     Dosage: 300 MILLIGRAM, ONCE A DAY
     Route: 065
  6. ATORVASTATIN 40 MG [Suspect]
     Active Substance: ATORVASTATIN
     Indication: TRANSIENT ISCHAEMIC ATTACK
     Dosage: 160 MILLIGRAM, ONCE A DAY
     Route: 065
  7. ASPIRIN. [Interacting]
     Active Substance: ASPIRIN
     Indication: PRODUCT USED FOR UNKNOWN INDICATION
     Dosage: 75 MILLIGRAM, ONCE A DAY, BETWEEN DAY 1 AND DAY 20
     Route: 065
  8. ACETYLSALICYLIC ACID [Concomitant]
     Active Substance: ASPIRIN
     Dosage: 75 MILLIGRAM, ONCE A DAY
     Route: 065
  9. CLOPIDOGREL [Interacting]
     Active Substance: CLOPIDOGREL BISULFATE
     Dosage: 75 MILLIGRAM, ONCE A DAY (STARTED FOLLOWING TIA CLINIC)
     Route: 048
  10. ACETYLSALICYLIC ACID [Concomitant]
     Active Substance: ASPIRIN
     Indication: PRODUCT USED FOR UNKNOWN INDICATION
     Dosage: 300 MILLIGRAM, ONCE A DAY, BETWEEN DAY 1 AND DAY 20.
     Route: 065

REACTIONS (10)
  - Drug interaction [Recovered/Resolved]
  - Arthralgia [Recovered/Resolved]
  - Alanine aminotransferase increased [Recovered/Resolved]
  - Drug-induced liver injury [Recovered/Resolved]
  - Diverticulum intestinal [Unknown]
  - Liver function test abnormal [Unknown]
  - Epistaxis [Recovered/Resolved]
  - Hypergammaglobulinaemia [Unknown]
  - Potentiating drug interaction [Unknown]
  - Blood alkaline phosphatase increased [Recovered/Resolved]
